FAERS Safety Report 25315415 (Version 4)
Quarter: 2025Q3

REPORT INFORMATION
  Report Type: Report from Study
  Country: US (occurrence: US)
  Receive Date: 20250514
  Receipt Date: 20250710
  Transmission Date: 20251020
  Serious: No
  Sender: SUNOVION
  Company Number: US-SMPA-2025SPA005158AA

PATIENT

DRUGS (4)
  1. ORGOVYX [Suspect]
     Active Substance: RELUGOLIX
     Indication: Prostate cancer
     Dosage: 120 MG, QD
     Route: 048
     Dates: start: 20250423
  2. OZEMPIC [Concomitant]
     Active Substance: SEMAGLUTIDE
     Route: 065
  3. B12 [Concomitant]
     Route: 065
  4. ZOLOFT [Concomitant]
     Active Substance: SERTRALINE HYDROCHLORIDE
     Route: 065

REACTIONS (8)
  - Gastroenteritis viral [Unknown]
  - Heart rate increased [Unknown]
  - Illness [Unknown]
  - Disorientation [Unknown]
  - Blood pressure increased [Unknown]
  - Dizziness [Unknown]
  - Headache [Unknown]
  - Incorrect dose administered [Unknown]
